FAERS Safety Report 4773780-3 (Version None)
Quarter: 2005Q3

REPORT INFORMATION
  Report Type: 
  Country: None (occurrence: None)
  Receive Date: 20050920
  Receipt Date: 20050729
  Transmission Date: 20060218
  Serious: Yes (Hospitalization)
  Sender: FDA-Public Use
  Company Number: US-MERCK-0508USA00488

PATIENT
  Sex: Female
  Weight: 77 kg

DRUGS (8)
  1. VIOXX [Suspect]
     Indication: ARTHRITIS
     Route: 048
     Dates: start: 19991001, end: 20031201
  2. VIOXX [Suspect]
     Indication: BACK PAIN
     Route: 048
     Dates: start: 19991001, end: 20031201
  3. SYNTHROID [Concomitant]
     Route: 048
  4. TRAMADOL MSD [Concomitant]
     Route: 048
  5. AMBIEN [Concomitant]
     Route: 048
  6. MOBIC [Concomitant]
     Route: 048
  7. PRILOSEC [Concomitant]
     Route: 048
  8. SKELAXIN [Concomitant]
     Route: 048

REACTIONS (3)
  - ABDOMINAL PAIN [None]
  - DEPRESSION [None]
  - MYOCARDIAL INFARCTION [None]
